FAERS Safety Report 5358925-9 (Version None)
Quarter: 2007Q2

REPORT INFORMATION
  Report Type: 
  Country: None (occurrence: None)
  Receive Date: 20070615
  Receipt Date: 20070612
  Transmission Date: 20071010
  Serious: Yes (Death)
  Sender: FDA-Public Use
  Company Number: B0474721A

PATIENT
  Age: 71 Year
  Sex: Female

DRUGS (3)
  1. PAXIL [Suspect]
     Indication: DEPRESSION
     Dosage: 10MG PER DAY
     Route: 048
     Dates: start: 20070605, end: 20070606
  2. DEPAS [Concomitant]
     Route: 048
  3. GOODMIN [Concomitant]
     Route: 048

REACTIONS (1)
  - SUDDEN DEATH [None]
